FAERS Safety Report 24993806 (Version 4)
Quarter: 2025Q1

REPORT INFORMATION
  Report Type: Spontaneous
  Country: NZ (occurrence: NZ)
  Receive Date: 20250221
  Receipt Date: 20250317
  Transmission Date: 20250408
  Serious: Yes (Hospitalization, Other)
  Sender: CSL BEHRING
  Company Number: NZ-BEH-2025196401

PATIENT
  Age: 44 Year
  Sex: Female
  Weight: 53 kg

DRUGS (25)
  1. PRIVIGEN [Suspect]
     Active Substance: HUMAN IMMUNOGLOBULIN G
     Indication: Bone marrow transplant
     Route: 042
     Dates: start: 20250209, end: 20250209
  2. PRIVIGEN [Suspect]
     Active Substance: HUMAN IMMUNOGLOBULIN G
     Indication: Stem cell transplant
     Route: 065
  3. PRIVIGEN [Suspect]
     Active Substance: HUMAN IMMUNOGLOBULIN G
     Indication: Plasmapheresis
     Route: 065
  4. PRIVIGEN [Suspect]
     Active Substance: HUMAN IMMUNOGLOBULIN G
     Route: 042
     Dates: start: 20250220, end: 20250221
  5. Alburex 20 NZ [Concomitant]
     Route: 065
  6. Alburex 20 NZ [Concomitant]
     Route: 065
  7. Alburex 20 NZ [Concomitant]
     Route: 065
  8. Alburex 20 NZ [Concomitant]
     Route: 065
  9. Alburex 20 NZ [Concomitant]
     Route: 065
  10. Alburex 20 NZ [Concomitant]
     Route: 065
  11. Alburex 5 NZ [Concomitant]
     Route: 065
  12. Alburex 5 NZ [Concomitant]
     Route: 065
  13. Alburex 5 NZ [Concomitant]
     Route: 065
  14. Alburex 5 NZ [Concomitant]
     Route: 065
  15. Alburex 5 NZ [Concomitant]
     Route: 065
  16. Alburex 5 NZ [Concomitant]
     Route: 065
  17. PIPERACILLIN SODIUM\TAZOBACTAM SODIUM [Concomitant]
     Active Substance: PIPERACILLIN SODIUM\TAZOBACTAM SODIUM
     Route: 042
  18. MEROPENEM [Concomitant]
     Active Substance: MEROPENEM
  19. COTRIMOXAZOLE [Concomitant]
     Active Substance: SULFAMETHOXAZOLE\TRIMETHOPRIM
  20. FLUCONAZOLE [Concomitant]
     Active Substance: FLUCONAZOLE
  21. CODEINE [Concomitant]
     Active Substance: CODEINE
  22. ACYCLOVIR [Concomitant]
     Active Substance: ACYCLOVIR
  23. ENTECAVIR [Concomitant]
     Active Substance: ENTECAVIR
  24. OMEPRAZOLE [Concomitant]
     Active Substance: OMEPRAZOLE
  25. LEVOMEPROMAZINE [Concomitant]
     Active Substance: LEVOMEPROMAZINE

REACTIONS (12)
  - Chills [Recovered/Resolved]
  - Chills [Recovered/Resolved]
  - Tachypnoea [Recovered/Resolved]
  - Tachycardia [Recovered/Resolved]
  - Cyanosis [Recovered/Resolved]
  - Body temperature increased [Recovered/Resolved]
  - Blood pressure increased [Recovered/Resolved]
  - Off label use [Unknown]
  - Pyrexia [Recovered/Resolved]
  - Chills [Recovered/Resolved]
  - Tachycardia [Recovered/Resolved]
  - Tachypnoea [Recovered/Resolved]

NARRATIVE: CASE EVENT DATE: 20250209
